APPROVED DRUG PRODUCT: BETAINE
Active Ingredient: BETAINE
Strength: 1GM/SCOOPFUL
Dosage Form/Route: FOR SOLUTION;ORAL
Application: A210508 | Product #001 | TE Code: AB
Applicant: ETON PHARMACEUTICALS INC
Approved: Jan 28, 2022 | RLD: No | RS: No | Type: RX